FAERS Safety Report 7374570-8 (Version None)
Quarter: 2011Q1

REPORT INFORMATION
  Report Type: 
  Country: None (occurrence: None)
  Receive Date: 20110325
  Receipt Date: 20100323
  Transmission Date: 20110831
  Serious: No
  Sender: FDA-Public Use
  Company Number: US-MYLANLABS-2010S1005063

PATIENT
  Age: 76 Year
  Sex: Female

DRUGS (10)
  1. FENTANYL-100 [Suspect]
     Route: 062
     Dates: start: 20100322, end: 20100322
  2. FENTANYL-100 [Suspect]
     Route: 062
     Dates: start: 20100310, end: 20100322
  3. INHALANT [Concomitant]
  4. ATIVAN [Concomitant]
  5. FENTANYL-100 [Suspect]
     Indication: PAIN
     Dosage: Q72HR
     Route: 062
     Dates: end: 20100310
  6. METOPROLOL [Concomitant]
  7. BUSPAR [Concomitant]
  8. NORVASC [Concomitant]
  9. SYNTHROID [Concomitant]
  10. PRILOSEC [Concomitant]

REACTIONS (3)
  - WRONG TECHNIQUE IN DRUG USAGE PROCESS [None]
  - PALPITATIONS [None]
  - DYSPNOEA [None]
